FAERS Safety Report 5213080-0 (Version None)
Quarter: 2007Q1

REPORT INFORMATION
  Report Type: 
  Country: None (occurrence: None)
  Receive Date: 20070118
  Receipt Date: 20070118
  Transmission Date: 20070707
  Serious: No
  Sender: FDA-Public Use
  Company Number: None

PATIENT
  Age: 50 Year
  Sex: Female
  Weight: 74.8435 kg

DRUGS (1)
  1. METOPROLOL TARTRATE [Suspect]
     Indication: BLOOD PRESSURE
     Dosage: 50 MG. 1/2 TABLET  TWICE/DAY
     Dates: start: 20061223, end: 20061226

REACTIONS (3)
  - CHEST DISCOMFORT [None]
  - MEDICATION ERROR [None]
  - PHARMACEUTICAL PRODUCT COMPLAINT [None]
